FAERS Safety Report 7301571-8 (Version None)
Quarter: 2011Q1

REPORT INFORMATION
  Report Type: 
  Country: None (occurrence: None)
  Receive Date: 20110208
  Receipt Date: 20110207
  Transmission Date: 20110831
  Serious: Yes (Life-Threatening, Hospitalization, Other)
  Sender: FDA-Public Use
  Company Number: 2009SP014629

PATIENT
  Age: 52 Year
  Sex: Female
  Weight: 66 kg

DRUGS (15)
  1. TYLENOL ER [Concomitant]
  2. CERETICOM [Concomitant]
  3. TEMODAL [Suspect]
     Indication: GLIOBLASTOMA MULTIFORME
     Dosage: 120 MG; QD; PO
     Route: 048
     Dates: start: 20090427, end: 20090608
  4. NICETILE [Concomitant]
  5. COZAAR [Concomitant]
  6. SEROQUEL [Concomitant]
  7. BESZYME [Concomitant]
  8. ZOVIRAX [Concomitant]
  9. ALBIS [Concomitant]
  10. TOPAMAX [Concomitant]
  11. GELMA [Concomitant]
  12. TOPAMAX [Concomitant]
  13. AMLODIPINE [Concomitant]
  14. SOLONDO [Concomitant]
  15. TRENTAL [Concomitant]

REACTIONS (5)
  - ACUTE RESPIRATORY DISTRESS SYNDROME [None]
  - PULMONARY OEDEMA [None]
  - ANTIBIOTIC RESISTANT STAPHYLOCOCCUS TEST POSITIVE [None]
  - PNEUMONIA [None]
  - SPUTUM CULTURE POSITIVE [None]
